FAERS Safety Report 19222161 (Version 3)
Quarter: 2021Q2

REPORT INFORMATION
  Report Type: Spontaneous
  Country: BR (occurrence: BR)
  Receive Date: 20210505
  Receipt Date: 20210629
  Transmission Date: 20210717
  Serious: Yes (Hospitalization)
  Sender: FDA-Public Use
  Company Number: BR-BAUSCH-BL-2021-014242

PATIENT
  Age: 65 Year
  Sex: Male

DRUGS (5)
  1. GENTAMICIN. [Suspect]
     Active Substance: GENTAMICIN
     Indication: ENDOCARDITIS BACTERIAL
     Route: 065
  2. NITROFURANTOIN. [Concomitant]
     Active Substance: NITROFURANTOIN
     Indication: ESCHERICHIA INFECTION
  3. DIPYRONE [Concomitant]
     Active Substance: DIPYRONE
     Indication: ADENOCARCINOMA
  4. CEFTRIAXONE. [Concomitant]
     Active Substance: CEFTRIAXONE
     Indication: ENDOCARDITIS BACTERIAL
  5. CEFTRIAXONE. [Concomitant]
     Active Substance: CEFTRIAXONE
     Indication: NORMOCHROMIC NORMOCYTIC ANAEMIA

REACTIONS (1)
  - Acute kidney injury [Recovered/Resolved]
